FAERS Safety Report 6518635-9 (Version None)
Quarter: 2009Q4

REPORT INFORMATION
  Report Type: 
  Country: None (occurrence: None)
  Receive Date: 20091228
  Receipt Date: 20091215
  Transmission Date: 20100525
  Serious: Yes (Other)
  Sender: FDA-Public Use
  Company Number: US-ROCHE-667610

PATIENT
  Sex: Female
  Weight: 2.5 kg

DRUGS (5)
  1. CELLCEPT [Suspect]
     Dates: start: 20040701, end: 20050425
  2. CELLCEPT [Suspect]
     Dosage: DOSE REDUCED
     Dates: start: 20050401
  3. CELLCEPT [Suspect]
     Dosage: DOSE: 500
     Dates: start: 20080101, end: 20090414
  4. PROGRAF [Concomitant]
     Dates: start: 20080101
  5. ENALAPRIL MALEATE [Concomitant]
     Dates: start: 20080101

REACTIONS (3)
  - ANOMALOUS PULMONARY VENOUS CONNECTION [None]
  - CONGENITAL ARTERIAL MALFORMATION [None]
  - DOUBLE OUTLET RIGHT VENTRICLE [None]
